FAERS Safety Report 14264925 (Version 3)
Quarter: 2018Q2

REPORT INFORMATION
  Report Type: Report from Study
  Country: GB (occurrence: GB)
  Receive Date: 20171208
  Receipt Date: 20180403
  Transmission Date: 20180711
  Serious: Yes (Other)
  Sender: FDA-Public Use
  Company Number: PHHY2017GB178948

PATIENT
  Age: 32 Year
  Sex: Female

DRUGS (1)
  1. COSENTYX [Suspect]
     Active Substance: SECUKINUMAB
     Indication: PSORIASIS
     Dosage: 300 MG, (TWO PENS) QMO
     Route: 058
     Dates: start: 20170731

REACTIONS (8)
  - Malaise [Unknown]
  - Facial paralysis [Recovered/Resolved]
  - Viral infection [Recovered/Resolved]
  - Inappropriate schedule of drug administration [Unknown]
  - Otitis media [Recovered/Resolved]
  - Tympanic membrane perforation [Recovered/Resolved]
  - Immune system disorder [Unknown]
  - Abscess [Recovered/Resolved]

NARRATIVE: CASE EVENT DATE: 20170731
